FAERS Safety Report 24596017 (Version 5)
Quarter: 2025Q1

REPORT INFORMATION
  Report Type: Report from Study
  Country: KR (occurrence: KR)
  Receive Date: 20241109
  Receipt Date: 20250204
  Transmission Date: 20250408
  Serious: Yes (Hospitalization)
  Sender: ABBVIE
  Company Number: KR-ABBVIE-5992919

PATIENT
  Age: 80 Year
  Sex: Male
  Weight: 61 kg

DRUGS (78)
  1. VENCLEXTA [Suspect]
     Active Substance: VENETOCLAX
     Indication: Acute myeloid leukaemia
     Route: 048
     Dates: start: 20241008, end: 20241008
  2. VENCLEXTA [Suspect]
     Active Substance: VENETOCLAX
     Indication: Acute myeloid leukaemia
     Route: 048
     Dates: start: 20241009, end: 20241009
  3. VENCLEXTA [Suspect]
     Active Substance: VENETOCLAX
     Indication: Acute myeloid leukaemia
     Route: 048
     Dates: start: 20241010, end: 20241109
  4. VENCLEXTA [Suspect]
     Active Substance: VENETOCLAX
     Indication: Acute myeloid leukaemia
     Route: 048
     Dates: start: 20241007, end: 20241007
  5. VENCLEXTA [Suspect]
     Active Substance: VENETOCLAX
     Indication: Acute myeloid leukaemia
     Route: 048
     Dates: start: 20241112, end: 20241211
  6. VENCLEXTA [Suspect]
     Active Substance: VENETOCLAX
     Indication: Acute myeloid leukaemia
     Route: 048
     Dates: start: 20241212, end: 20250103
  7. SILODOSIN [Concomitant]
     Active Substance: SILODOSIN
     Indication: Benign prostatic hyperplasia
     Route: 048
     Dates: start: 20191204
  8. ALDACTONE [Concomitant]
     Active Substance: SPIRONOLACTONE
     Indication: Prophylaxis
     Dosage: FILM COATED TAB 25MG
     Route: 048
     Dates: start: 20241113, end: 20241113
  9. HERBALS [Concomitant]
     Active Substance: HERBALS
     Indication: Dyspepsia
     Route: 048
     Dates: start: 20241001, end: 20241229
  10. K CAB [Concomitant]
     Indication: Reflux laryngitis
     Dosage: 50 MG
     Route: 048
     Dates: start: 20241001, end: 20241229
  11. DIFLUCAN [Concomitant]
     Active Substance: FLUCONAZOLE
     Indication: Antifungal prophylaxis
     Dosage: 50MG
     Route: 048
     Dates: start: 20241104, end: 20241114
  12. PENIRAMIN [Concomitant]
     Indication: Premedication
     Route: 042
     Dates: start: 20241015, end: 20241114
  13. HYDROCHLOROTHIAZIDE\TELMISARTAN [Concomitant]
     Active Substance: HYDROCHLOROTHIAZIDE\TELMISARTAN
     Indication: Hypertension
     Dosage: 80/12.5MG
     Route: 048
     Dates: start: 20160225, end: 20250116
  14. HYDROCHLOROTHIAZIDE\TELMISARTAN [Concomitant]
     Active Substance: HYDROCHLOROTHIAZIDE\TELMISARTAN
     Indication: Hypertension
     Route: 048
     Dates: start: 20250117
  15. Codaewon S [Concomitant]
     Indication: Chronic obstructive pulmonary disease
     Route: 048
     Dates: start: 20241211, end: 20250103
  16. MELATONIN [Concomitant]
     Active Substance: MELATONIN
     Indication: Insomnia
     Dosage: PR
     Route: 048
     Dates: start: 20191204, end: 20241110
  17. NICORANDIL [Concomitant]
     Active Substance: NICORANDIL
     Indication: Aortic stenosis
     Route: 048
     Dates: start: 20241004, end: 20241030
  18. TACENOL [Concomitant]
     Indication: Pyrexia
     Dosage: 8HOURS ER TAB 650MG
     Route: 048
     Dates: start: 20241113, end: 20241113
  19. CONBLOC [Concomitant]
     Indication: Myocardial ischaemia
     Dosage: 1.25 MG
     Route: 048
     Dates: start: 20241004, end: 20241030
  20. CONBLOC [Concomitant]
     Indication: Myocardial ischaemia
     Route: 048
     Dates: start: 20250116
  21. Fexuclue [Concomitant]
     Indication: Gastritis prophylaxis
     Route: 048
     Dates: start: 20240913, end: 20241012
  22. CRESTOR [Concomitant]
     Active Substance: ROSUVASTATIN CALCIUM
     Indication: Hyperlipidaemia
     Route: 048
     Dates: start: 20160225, end: 20241030
  23. CRESTOR [Concomitant]
     Active Substance: ROSUVASTATIN CALCIUM
     Indication: Hyperlipidaemia
     Dosage: 10 MG
     Route: 048
     Dates: start: 20241212
  24. OMAPONE [Concomitant]
     Indication: Prophylaxis
     Route: 042
     Dates: start: 20241111, end: 20241114
  25. UMECLIDINIUM BROMIDE\VILANTEROL TRIFENATATE [Concomitant]
     Active Substance: UMECLIDINIUM BROMIDE\VILANTEROL TRIFENATATE
     Indication: Dyspnoea
     Route: 055
     Dates: start: 20240913, end: 20241012
  26. UMECLIDINIUM BROMIDE\VILANTEROL TRIFENATATE [Concomitant]
     Active Substance: UMECLIDINIUM BROMIDE\VILANTEROL TRIFENATATE
     Indication: Dyspnoea
     Route: 055
  27. NOXAFIL [Concomitant]
     Active Substance: POSACONAZOLE
     Indication: Antifungal prophylaxis
     Dosage: GASTRO RESISTANT 100MG
     Route: 048
     Dates: start: 20241007, end: 20241020
  28. NOXAFIL [Concomitant]
     Active Substance: POSACONAZOLE
     Indication: Antifungal prophylaxis
     Dosage: GASTRO RESISTANT 100MG
     Route: 048
     Dates: start: 20241028, end: 20241028
  29. paracin [Concomitant]
     Indication: Prophylaxis
     Dosage: 75 ML
     Route: 042
     Dates: start: 20241111, end: 20241112
  30. ZOLPIDEM TARTRATE [Concomitant]
     Active Substance: ZOLPIDEM TARTRATE
     Indication: Insomnia
     Route: 048
     Dates: start: 20191204, end: 20241027
  31. ATIVAN [Concomitant]
     Active Substance: LORAZEPAM
     Indication: Delirium
     Route: 042
     Dates: start: 20250105, end: 20250117
  32. Furix [Concomitant]
     Indication: Prophylaxis
     Dosage: 40MG
     Route: 048
     Dates: start: 20241113, end: 20241113
  33. ZOLPIDEM TARTRATE [Concomitant]
     Active Substance: ZOLPIDEM TARTRATE
     Indication: Insomnia
     Route: 048
     Dates: start: 20241028, end: 20241110
  34. Citopcin [Concomitant]
     Indication: Infection prophylaxis
     Dosage: 250 MG
     Route: 048
     Dates: start: 20241007, end: 20241020
  35. MAGNESIUM HYDROXIDE [Concomitant]
     Active Substance: MAGNESIUM HYDROXIDE
     Indication: Constipation
     Route: 048
     Dates: start: 20241106, end: 20241107
  36. MAGNESIUM HYDROXIDE [Concomitant]
     Active Substance: MAGNESIUM HYDROXIDE
     Indication: Constipation
     Dosage: 500MG
     Route: 048
     Dates: start: 20241108, end: 20250103
  37. MAGNESIUM HYDROXIDE [Concomitant]
     Active Substance: MAGNESIUM HYDROXIDE
     Indication: Constipation
     Route: 048
     Dates: start: 20241028, end: 20241104
  38. Bronpass [Concomitant]
     Indication: Chronic obstructive pulmonary disease
     Route: 048
     Dates: start: 20240913, end: 20241012
  39. Bronpass [Concomitant]
     Indication: Chronic obstructive pulmonary disease
     Route: 048
     Dates: start: 20241211, end: 20250103
  40. LASIX [Concomitant]
     Active Substance: FUROSEMIDE
     Indication: Prophylaxis
     Route: 042
     Dates: start: 20241015, end: 20241214
  41. NORVASC [Concomitant]
     Active Substance: AMLODIPINE BESYLATE
     Indication: Hypertension
     Dosage: 5 MG
     Route: 048
     Dates: start: 20160225, end: 20241030
  42. NORVASC [Concomitant]
     Active Substance: AMLODIPINE BESYLATE
     Indication: Hypertension
     Dosage: 5 MG
     Route: 048
     Dates: start: 20250117
  43. MICATERE [Concomitant]
     Indication: Hypertension
     Dosage: 80MG
     Route: 048
     Dates: start: 20250117
  44. CALCIUM POLYSTYRENE SULFONATE [Concomitant]
     Active Substance: CALCIUM POLYSTYRENE SULFONATE
     Indication: Prophylaxis
     Route: 048
     Dates: start: 20241031, end: 20241104
  45. CALCIUM POLYSTYRENE SULFONATE [Concomitant]
     Active Substance: CALCIUM POLYSTYRENE SULFONATE
     Indication: Prophylaxis
     Route: 048
  46. LEVOCARE CR [Concomitant]
     Indication: Chronic obstructive pulmonary disease
     Route: 048
     Dates: start: 20240913, end: 20241012
  47. LEVOCARE CR [Concomitant]
     Indication: Chronic obstructive pulmonary disease
     Route: 048
     Dates: start: 20241211, end: 20250103
  48. AMARYL [Concomitant]
     Active Substance: GLIMEPIRIDE
     Indication: Diabetes mellitus
     Route: 048
     Dates: start: 20241101
  49. MEGACE F [Concomitant]
     Indication: Decreased appetite
     Dosage: SUSPENSION
     Route: 048
     Dates: start: 20241001, end: 20250106
  50. XANAX [Concomitant]
     Active Substance: ALPRAZOLAM
     Indication: Anxiety
     Dosage: 0.25MG
     Route: 048
     Dates: start: 20240930, end: 20241110
  51. VIDAZA [Concomitant]
     Active Substance: AZACITIDINE
     Indication: Acute myeloid leukaemia
     Dosage: 100 MG
     Route: 042
     Dates: start: 20241104, end: 20241108
  52. VIDAZA [Concomitant]
     Active Substance: AZACITIDINE
     Indication: Acute myeloid leukaemia
     Route: 042
     Dates: start: 20241007, end: 20241016
  53. VIDAZA [Concomitant]
     Active Substance: AZACITIDINE
     Indication: Acute myeloid leukaemia
     Dosage: 100 MG
     Route: 042
     Dates: start: 20241212, end: 20241218
  54. Citra [Concomitant]
     Indication: Lethargy
     Route: 048
     Dates: start: 20241108, end: 20241108
  55. METFORMIN HYDROCHLORIDE\VILDAGLIPTIN [Concomitant]
     Active Substance: METFORMIN HYDROCHLORIDE\VILDAGLIPTIN
     Indication: Diabetes mellitus
     Dosage: 50/850MG
     Route: 048
     Dates: start: 20160225, end: 20241014
  56. METFORMIN HYDROCHLORIDE\VILDAGLIPTIN [Concomitant]
     Active Substance: METFORMIN HYDROCHLORIDE\VILDAGLIPTIN
     Indication: Diabetes mellitus
     Dosage: 50/850MG
     Route: 048
     Dates: start: 20241015, end: 20241117
  57. ABILIFY [Concomitant]
     Active Substance: ARIPIPRAZOLE
     Indication: Delirium
     Dosage: 1MG
     Route: 048
     Dates: start: 20250108
  58. NORPIN [Concomitant]
     Indication: Hypotension
     Route: 042
     Dates: start: 20241108, end: 20241111
  59. CEFTAZIDIME [Concomitant]
     Active Substance: CEFTAZIDIME
     Indication: Infection prophylaxis
     Route: 042
     Dates: start: 20241113, end: 20241115
  60. CEFTAZIDIME [Concomitant]
     Active Substance: CEFTAZIDIME
     Indication: Infection prophylaxis
     Route: 042
     Dates: start: 20241116, end: 20241129
  61. Dulackhan easy [Concomitant]
     Indication: Constipation
     Route: 048
     Dates: start: 20241028, end: 20241104
  62. Dulackhan easy [Concomitant]
     Indication: Constipation
     Route: 048
     Dates: start: 20241216, end: 20250103
  63. Dulackhan easy [Concomitant]
     Indication: Constipation
     Dosage: FREQUENCY TEXT: PRN
     Route: 048
     Dates: start: 20250114
  64. TRAZODONE HYDROCHLORIDE [Concomitant]
     Active Substance: TRAZODONE HYDROCHLORIDE
     Indication: Delirium
     Dosage: 25MG
     Route: 048
     Dates: start: 20250108
  65. PIPERACILLIN SODIUM\TAZOBACTAM SODIUM [Concomitant]
     Active Substance: PIPERACILLIN SODIUM\TAZOBACTAM SODIUM
     Indication: Pyrexia
     Route: 042
     Dates: start: 20241108, end: 20241108
  66. PIPERACILLIN SODIUM\TAZOBACTAM SODIUM [Concomitant]
     Active Substance: PIPERACILLIN SODIUM\TAZOBACTAM SODIUM
     Indication: Pyrexia
     Route: 042
     Dates: start: 20241109, end: 20241113
  67. TYLENOL [Concomitant]
     Active Substance: ACETAMINOPHEN
     Indication: Pyrexia
     Dosage: 8HOURS ER TAB 650MG
     Route: 048
     Dates: start: 20241108, end: 20241109
  68. COUGH SYRUP [Concomitant]
     Active Substance: DEXTROMETHORPHAN HYDROBROMIDE\GUAIFENESIN
     Indication: Chronic obstructive pulmonary disease
     Route: 048
     Dates: start: 20241111
  69. METFORMIN HYDROCHLORIDE [Concomitant]
     Active Substance: METFORMIN HYDROCHLORIDE
     Indication: Diabetes mellitus
     Route: 048
     Dates: start: 20241029, end: 20241111
  70. LINAGLIPTIN [Concomitant]
     Active Substance: LINAGLIPTIN
     Indication: Diabetes mellitus
     Route: 048
     Dates: start: 20241112
  71. ERDOSTEINE [Concomitant]
     Active Substance: ERDOSTEINE
     Indication: Chronic obstructive pulmonary disease
     Route: 048
     Dates: start: 20241110, end: 20241110
  72. ERDOSTEINE [Concomitant]
     Active Substance: ERDOSTEINE
     Indication: Chronic obstructive pulmonary disease
     Route: 048
     Dates: start: 20241111
  73. HUMALOG [Concomitant]
     Active Substance: INSULIN LISPRO
     Indication: Diabetes mellitus
     Dosage: 100I.U/ML?UNIT DOSE: UKIU
     Route: 058
     Dates: start: 20241111
  74. PHOSTEN [Concomitant]
     Indication: Prophylaxis
     Dosage: 20ML (AMP)(PP)
     Route: 042
     Dates: start: 20241111, end: 20241112
  75. AZELASTINE HYDROCHLORIDE [Concomitant]
     Active Substance: AZELASTINE HYDROCHLORIDE
     Indication: Dyspnoea
     Route: 048
     Dates: start: 20241108, end: 20250103
  76. GASTER [Concomitant]
     Active Substance: FAMOTIDINE
     Indication: Gastritis prophylaxis
     Route: 042
     Dates: start: 20250107, end: 20250110
  77. REBAMIPIDE [Concomitant]
     Active Substance: REBAMIPIDE
     Indication: Gastritis prophylaxis
     Dosage: 100MG
     Route: 048
     Dates: start: 20250118
  78. DICHLOZID [Concomitant]
     Indication: Hypertension
     Dosage: 25 MG
     Route: 048
     Dates: start: 20250117

REACTIONS (2)
  - Hyponatraemia [Recovered/Resolved]
  - Pneumonia influenzal [Recovered/Resolved]

NARRATIVE: CASE EVENT DATE: 20241028
